FAERS Safety Report 8987877 (Version 1)
Quarter: 2012Q4

REPORT INFORMATION
  Report Type: 
  Country: FR (occurrence: FR)
  Receive Date: 20121227
  Receipt Date: 20121227
  Transmission Date: 20130627
  Serious: Yes (Hospitalization)
  Sender: FDA-Public Use
  Company Number: FR-009507513-1212FRA007694

PATIENT
  Age: 75 Year
  Sex: Male

DRUGS (8)
  1. INVANZ [Suspect]
     Indication: SEPSIS
     Dosage: 1 g, qd
     Route: 042
     Dates: start: 20121119, end: 20121122
  2. OFLOCET [Suspect]
     Indication: SEPSIS
     Dosage: 200 mg, qod
     Route: 042
     Dates: start: 20121119
  3. CRESTOR [Concomitant]
     Dosage: 1 DF, qd
  4. SECTRAL [Concomitant]
     Dosage: 200 mg, qd
     Route: 048
  5. TRIATEC (RAMIPRIL) [Concomitant]
     Dosage: 1.25 mg, qd
     Route: 048
  6. KARDEGIC [Concomitant]
     Dosage: 75 mg, qd
     Route: 048
  7. MOPRAL (OMEPRAZOLE SODIUM) [Concomitant]
     Dosage: 20 mg, qd
  8. GLUCOPHAGE [Concomitant]
     Dosage: 1000 mg, bid

REACTIONS (1)
  - Partial seizures [Recovered/Resolved]
